FAERS Safety Report 14995361 (Version 2)
Quarter: 2018Q2

REPORT INFORMATION
  Report Type: Spontaneous
  Country: SI (occurrence: SI)
  Receive Date: 20180611
  Receipt Date: 20180619
  Transmission Date: 20180711
  Serious: Yes (Hospitalization, Other)
  Sender: FDA-Public Use
  Company Number: SI-PFIZER INC-2018232198

PATIENT

DRUGS (5)
  1. LACIPIL [Suspect]
     Active Substance: LACIDIPINE
     Dosage: 4 MG, QD
     Route: 065
  2. MICARDIS [Suspect]
     Active Substance: TELMISARTAN
     Dosage: 80 MG, QD
     Route: 065
  3. PANTOPRAZOLE [Suspect]
     Active Substance: PANTOPRAZOLE
     Dosage: 20 MG, QD
     Route: 065
  4. TONOCARDIN /00639301/ [Suspect]
     Active Substance: DOXAZOSIN\DOXAZOSIN MESYLATE
     Dosage: 4 MG, QD
     Route: 065
  5. APAURIN [Suspect]
     Active Substance: DIAZEPAM
     Dosage: 2 MG, QD
     Route: 065

REACTIONS (9)
  - Oedema peripheral [Unknown]
  - Oxygen saturation decreased [Unknown]
  - Blood bilirubin increased [Unknown]
  - Blood creatinine increased [Unknown]
  - Dyspnoea exertional [Unknown]
  - Blood potassium decreased [Unknown]
  - PO2 decreased [Unknown]
  - Blood bilirubin unconjugated increased [Unknown]
  - Bilirubin conjugated increased [Unknown]
